FAERS Safety Report 21083526 (Version 1)
Quarter: 2022Q3

REPORT INFORMATION
  Report Type: Spontaneous
  Country: US (occurrence: None)
  Receive Date: 20220714
  Receipt Date: 20220714
  Transmission Date: 20221027
  Serious: Yes (Hospitalization)
  Sender: FDA-Public Use
  Company Number: None

PATIENT
  Age: 70 Year
  Sex: Male
  Weight: 78.02 kg

DRUGS (8)
  1. TRELSTAR [Suspect]
     Active Substance: TRIPTORELIN PAMOATE
     Indication: Prostate cancer
     Dosage: OTHER FREQUENCY : Q 3 MONTHS;?
     Route: 030
     Dates: start: 202010, end: 202204
  2. amlodipine Besy-Benazepril HCP [Concomitant]
  3. APIXABAN [Concomitant]
     Active Substance: APIXABAN
  4. ISOSORBIDE DINITRATE [Concomitant]
     Active Substance: ISOSORBIDE DINITRATE
  5. leveiracetam [Concomitant]
  6. LIPITOR [Concomitant]
     Active Substance: ATORVASTATIN CALCIUM
  7. TOPIRAMATE [Concomitant]
     Active Substance: TOPIRAMATE
  8. LISINOPRIL [Concomitant]

REACTIONS (1)
  - Seizure [None]
